FAERS Safety Report 9126632 (Version 1)
Quarter: 2013Q1

REPORT INFORMATION
  Report Type: Spontaneous
  Country: US (occurrence: US)
  Receive Date: 20130228
  Receipt Date: 20130228
  Transmission Date: 20140127
  Serious: No
  Sender: FDA-Public Use
  Company Number: US-009507513-1302USA007166

PATIENT
  Sex: Male

DRUGS (2)
  1. PEGINTRON [Suspect]
     Indication: HEPATITIS C
     Dosage: UNK
     Dates: start: 20110201, end: 20110415
  2. RIBAVIRIN [Suspect]
     Indication: HEPATITIS C
     Dosage: UNK
     Dates: start: 20110201, end: 20110415

REACTIONS (4)
  - Drug ineffective [Unknown]
  - Chills [Unknown]
  - Pyrexia [Unknown]
  - Influenza like illness [Unknown]
